FAERS Safety Report 5929455-8 (Version None)
Quarter: 2008Q4

REPORT INFORMATION
  Report Type: 
  Country: None (occurrence: None)
  Receive Date: 20081024
  Receipt Date: 20081020
  Transmission Date: 20090506
  Serious: Yes (Other)
  Sender: FDA-Public Use
  Company Number: US-ELI_LILLY_AND_COMPANY-US200809001218

PATIENT
  Sex: Female

DRUGS (27)
  1. HUMALOG [Suspect]
     Indication: TYPE 1 DIABETES MELLITUS
     Dosage: UNK, AS NEEDED
     Dates: start: 19980703
  2. HUMULIN N [Suspect]
     Indication: TYPE 1 DIABETES MELLITUS
     Dosage: 7 U, EACH MORNING
     Dates: start: 19980703
  3. LIPITOR [Concomitant]
     Indication: HYPERLIPIDAEMIA
     Dosage: 10 MG, UNK
     Dates: start: 19980703
  4. CENTRUM SILVER [Concomitant]
  5. CALCIUM [Concomitant]
     Dosage: UNK, DAILY (1/D)
  6. MAGNESIUM SULFATE [Concomitant]
  7. POTASSIUM CHLORIDE [Concomitant]
  8. VITAMIN D [Concomitant]
  9. IRON [Concomitant]
  10. FOLIC ACID [Concomitant]
  11. FISH OIL [Concomitant]
     Dosage: UNK, DAILY (1/D)
  12. VITAMIN B-12 [Concomitant]
  13. LEVOTHYROXINE SODIUM [Concomitant]
     Dosage: UNK, DAILY (1/D)
  14. ALEVE [Concomitant]
  15. ASPIRIN [Concomitant]
     Dosage: 81 MG, DAILY (1/D)
  16. FLONASE [Concomitant]
     Indication: RHINITIS ALLERGIC
     Dosage: UNK, DAILY (1/D)
     Dates: start: 20070804
  17. MIACALCIN [Concomitant]
     Indication: OSTEOPOROSIS
     Dosage: UNK, UNK
     Dates: start: 19980703
  18. FOSAMAX [Concomitant]
     Indication: OSTEOPOROSIS
     Dosage: 70 MG, WEEKLY (1/W)
     Dates: start: 19980703
  19. SYNTHROID [Concomitant]
     Indication: HYPOTHYROIDISM
     Dosage: 0.5 MG, DAILY (1/D)
     Dates: start: 20070410
  20. RESTASIS [Concomitant]
     Indication: DRY EYE
     Dates: start: 20070706
  21. LEXAPRO [Concomitant]
     Indication: DEPRESSION
     Dosage: 10 MG, DAILY (1/D)
     Dates: start: 20080311
  22. LANTUS [Concomitant]
     Indication: TYPE 1 DIABETES MELLITUS
     Dates: start: 20060407, end: 20060707
  23. ATACAND [Concomitant]
     Indication: RENAL FAILURE
     Dosage: 32 MG, DAILY (1/D)
     Dates: start: 19980703, end: 19990726
  24. NYSTATIN [Concomitant]
     Dosage: UNK, AS NEEDED
  25. VITAMIN B6 [Concomitant]
  26. GLUCAGON [Concomitant]
     Dosage: UNK, AS NEEDED
  27. DIFLUCAN [Concomitant]
     Dosage: UNK, AS NEEDED

REACTIONS (14)
  - CONTUSION [None]
  - DRUG HYPERSENSITIVITY [None]
  - EXCORIATION [None]
  - EYE HAEMORRHAGE [None]
  - FALL [None]
  - FEELING ABNORMAL [None]
  - FEELING DRUNK [None]
  - FRUSTRATION [None]
  - HYPOGLYCAEMIA [None]
  - INTERVERTEBRAL DISC DEGENERATION [None]
  - MUSCULOSKELETAL CHEST PAIN [None]
  - OEDEMA PERIPHERAL [None]
  - ROAD TRAFFIC ACCIDENT [None]
  - SCOLIOSIS [None]
